FAERS Safety Report 13323500 (Version 1)
Quarter: 2017Q1

REPORT INFORMATION
  Report Type: Spontaneous
  Country: US (occurrence: US)
  Receive Date: 20170310
  Receipt Date: 20170310
  Transmission Date: 20170428
  Serious: Yes (Hospitalization)
  Sender: FDA-Public Use
  Company Number: US-RICOLA USA INC.-1064118

PATIENT
  Age: 57 Year
  Sex: Female

DRUGS (1)
  1. NATURAL CHERRY HONEY HERB THROAT DROPS [Suspect]
     Active Substance: MENTHOL
     Indication: HYPERSENSITIVITY
     Route: 048
     Dates: start: 2007, end: 2007

REACTIONS (1)
  - Hypersensitivity [Recovered/Resolved]

NARRATIVE: CASE EVENT DATE: 2007
